FAERS Safety Report 8282132-3 (Version None)
Quarter: 2012Q2

REPORT INFORMATION
  Report Type: 
  Country: None (occurrence: None)
  Receive Date: 20120413
  Receipt Date: 20120410
  Transmission Date: 20120825
  Serious: Yes (Death, Hospitalization)
  Sender: FDA-Public Use
  Company Number: DE-BRISTOL-MYERS SQUIBB COMPANY-16222333

PATIENT
  Age: 70 Year
  Sex: Male
  Weight: 83 kg

DRUGS (10)
  1. CETUXIMAB [Suspect]
     Indication: NON-SMALL CELL LUNG CANCER
     Dosage: CETUXIMAB IV INFUSION STRENGTH:5MG/ML .NO OF INFUSION-24,DISC LAST DOSE ON 21OCT2011
     Route: 042
     Dates: start: 20110506, end: 20111021
  2. FORMOTEROL [Concomitant]
     Dosage: 22MAR11-23NOV11;246DAYS,23MAR11-UNK;24MCG;12MCG BID
     Route: 048
     Dates: start: 20110322
  3. PANTOPRAZOLE [Concomitant]
     Indication: PROPHYLAXIS
     Route: 048
     Dates: start: 20110101
  4. VINORELBINE [Suspect]
     Indication: NON-SMALL CELL LUNG CANCER
     Dosage: VINORELBINE IV INFUSION.LAST DOSE ON 26AUG2011. NO OF INFUSION-12.,LONG TIME D1 AND D8OF EACHCYCLE
     Route: 042
     Dates: start: 20110506, end: 20110826
  5. CANDESARTAN CILEXETIL [Concomitant]
     Route: 048
     Dates: start: 20080101
  6. APREPITANT [Concomitant]
     Indication: PROPHYLAXIS
     Route: 048
     Dates: start: 20110501, end: 20110501
  7. CISPLATIN [Suspect]
     Indication: NON-SMALL CELL LUNG CANCER
     Dosage: LAST DOSE ON 19AUG2011 NO OF INFUSION-6,LONG TIME
     Route: 042
     Dates: start: 20110506, end: 20110819
  8. ASPIRIN [Concomitant]
     Indication: PROPHYLAXIS
     Route: 048
     Dates: start: 20110503
  9. OXAZEPAM [Concomitant]
     Indication: PROPHYLAXIS
     Route: 048
     Dates: start: 20110504, end: 20110508
  10. TIOTROPIUM BROMIDE [Concomitant]
     Indication: PROPHYLAXIS
     Route: 055
     Dates: start: 20110323

REACTIONS (5)
  - HAEMOGLOBIN DECREASED [None]
  - NON-SMALL CELL LUNG CANCER [None]
  - PNEUMONIA [None]
  - PULMONARY EMBOLISM [None]
  - NEOPLASM PROGRESSION [None]
